FAERS Safety Report 6761389-1 (Version None)
Quarter: 2010Q2

REPORT INFORMATION
  Report Type: 
  Country: None (occurrence: None)
  Receive Date: 20100607
  Receipt Date: 20100526
  Transmission Date: 20101027
  Serious: Yes (Other)
  Sender: FDA-Public Use
  Company Number: RU-1182057

PATIENT
  Age: 84 Year
  Sex: Female

DRUGS (2)
  1. AZOPT [Suspect]
     Indication: GLAUCOMA
     Dosage: OPHTHALMIC
     Route: 047
     Dates: start: 20100526
  2. ARUTIMOL (TIMOLOL MALEATE) [Concomitant]

REACTIONS (2)
  - OCULAR DISCOMFORT [None]
  - VISUAL IMPAIRMENT [None]
